FAERS Safety Report 15607102 (Version 3)
Quarter: 2018Q4

REPORT INFORMATION
  Report Type: Report from Study
  Country: IT (occurrence: IT)
  Receive Date: 20181112
  Receipt Date: 20181115
  Transmission Date: 20190205
  Serious: Yes (Other)
  Sender: FDA-Public Use
  Company Number: IT-TEVA-2018-IT-973979

PATIENT
  Age: 68 Year
  Sex: Female

DRUGS (1)
  1. FLUOROURACIL. [Suspect]
     Active Substance: FLUOROURACIL
     Indication: RECTAL CANCER
     Dosage: RECEIVED ON DAYS 1-5 EVERY 4 WEEKS FOR SIX CYCLES
     Route: 065

REACTIONS (1)
  - Anal incontinence [Recovering/Resolving]
